FAERS Safety Report 6834116-7 (Version None)
Quarter: 2010Q3

REPORT INFORMATION
  Report Type: 
  Country: None (occurrence: None)
  Receive Date: 20100712
  Receipt Date: 20070422
  Transmission Date: 20110219
  Serious: No
  Sender: FDA-Public Use
  Company Number: US-PFIZER INC-2007033679

PATIENT
  Sex: Male
  Weight: 77.272 kg

DRUGS (3)
  1. CHANTIX [Suspect]
     Indication: SMOKING CESSATION THERAPY
     Route: 048
     Dates: start: 20070411
  2. LORTAB [Concomitant]
  3. SOMA [Concomitant]

REACTIONS (11)
  - ABNORMAL DREAMS [None]
  - DIZZINESS [None]
  - FEELING DRUNK [None]
  - HEADACHE [None]
  - INSOMNIA [None]
  - MALAISE [None]
  - NAUSEA [None]
  - RETCHING [None]
  - SOMNOLENCE [None]
  - VERTIGO [None]
  - VOMITING [None]
